FAERS Safety Report 9636001 (Version 1)
Quarter: 2013Q4

REPORT INFORMATION
  Report Type: Spontaneous
  Country: SE (occurrence: SE)
  Receive Date: 20131021
  Receipt Date: 20131021
  Transmission Date: 20140711
  Serious: Yes (Hospitalization, Other)
  Sender: FDA-Public Use
  Company Number: SE-ACTAVIS-2013-18214

PATIENT
  Age: 16 Year
  Sex: Male

DRUGS (10)
  1. RISPERIDONE (UNKNOWN) [Suspect]
     Indication: BIPOLAR DISORDER
     Dosage: 4 MG, UNKNOWN
     Route: 065
  2. RISPERIDONE (UNKNOWN) [Suspect]
     Indication: ABNORMAL BEHAVIOUR
  3. TOPIRAMATE (UNKNOWN) [Suspect]
     Indication: BIPOLAR DISORDER
     Dosage: 200 MG, UNKNOWN
     Route: 065
  4. TOPIRAMATE (UNKNOWN) [Suspect]
     Indication: ABNORMAL BEHAVIOUR
  5. ARIPIPRAZOLE (UNKNOWN) [Suspect]
     Indication: BIPOLAR DISORDER
     Dosage: 15 MG, UNKNOWN
     Route: 065
  6. ARIPIPRAZOLE (UNKNOWN) [Suspect]
     Indication: ABNORMAL BEHAVIOUR
  7. VENLAFAXINE (UNKNOWN) [Suspect]
     Indication: BIPOLAR DISORDER
     Dosage: 300 MG, UNKNOWN
     Route: 065
  8. VENLAFAXINE (UNKNOWN) [Suspect]
     Indication: ABNORMAL BEHAVIOUR
  9. ZONISAMIDE (WATSON LABORATORIES) [Suspect]
     Indication: BIPOLAR DISORDER
     Dosage: 400 MG, UNKNOWN
     Route: 065
  10. ZONISAMIDE (WATSON LABORATORIES) [Suspect]
     Indication: ABNORMAL BEHAVIOUR

REACTIONS (2)
  - Rhabdomyolysis [Recovering/Resolving]
  - Renal failure acute [Recovering/Resolving]
